FAERS Safety Report 5637815-8 (Version None)
Quarter: 2008Q1

REPORT INFORMATION
  Report Type: 
  Country: None (occurrence: None)
  Receive Date: 20080220
  Receipt Date: 20080212
  Transmission Date: 20080703
  Serious: Yes (Death)
  Sender: FDA-Public Use
  Company Number: 163-20785-08020685

PATIENT
  Age: 50 Year
  Sex: Male
  Weight: 53.6 kg

DRUGS (3)
  1. THALOMID [Suspect]
     Indication: MYCOBACTERIUM AVIUM COMPLEX INFECTION
     Dosage: ORAL
     Route: 048
  2. INTERFERON-GAMMA (INTERFERON GAMMA) [Concomitant]
  3. MEFLOQUINE [Concomitant]

REACTIONS (2)
  - INFECTION [None]
  - RESPIRATORY FAILURE [None]
